FAERS Safety Report 19960722 (Version 1)
Quarter: 2021Q4

REPORT INFORMATION
  Report Type: Report from Study
  Country: US (occurrence: US)
  Receive Date: 20211016
  Receipt Date: 20211016
  Transmission Date: 20220303
  Serious: Yes (Disabling, Other)
  Sender: FDA-Public Use
  Company Number: US-REGENERON PHARMACEUTICALS, INC.-2021-91915

PATIENT

DRUGS (2)
  1. EYLEA [Suspect]
     Active Substance: AFLIBERCEPT
     Indication: Neovascular age-related macular degeneration
  2. EYLEA [Suspect]
     Active Substance: AFLIBERCEPT
     Indication: Choroidal neovascularisation

REACTIONS (3)
  - Blindness transient [Recovered/Resolved]
  - Eye pain [Recovered/Resolved]
  - Lacrimation increased [Recovered/Resolved]
